FAERS Safety Report 25254735 (Version 1)
Quarter: 2025Q2

REPORT INFORMATION
  Report Type: Spontaneous
  Country: US (occurrence: None)
  Receive Date: 20250429
  Receipt Date: 20250429
  Transmission Date: 20250717
  Serious: No
  Sender: FDA-CTU
  Company Number: None

PATIENT
  Age: 64 Year
  Sex: Male

DRUGS (2)
  1. EVEROLIMUS [Suspect]
     Active Substance: EVEROLIMUS
     Indication: Renal cancer
     Dosage: FREQUENCY : DAILY;?
  2. LENVIMA [Suspect]
     Active Substance: LENVATINIB

REACTIONS (11)
  - Therapy interrupted [None]
  - Abdominal pain upper [None]
  - Gastrointestinal inflammation [None]
  - Decreased appetite [None]
  - Taste disorder [None]
  - Nausea [None]
  - Rash [None]
  - Skin disorder [None]
  - Acne [None]
  - Weight decreased [None]
  - Hypertension [None]
